FAERS Safety Report 15921165 (Version 2)
Quarter: 2019Q1

REPORT INFORMATION
  Report Type: Report from Study
  Country: GB (occurrence: GB)
  Receive Date: 20190205
  Receipt Date: 20190222
  Transmission Date: 20190417
  Serious: No
  Sender: FDA-Public Use
  Company Number: GB-ELI_LILLY_AND_COMPANY-GB201901015637

PATIENT
  Sex: Male

DRUGS (11)
  1. APIXABAN [Concomitant]
     Active Substance: APIXABAN
  2. GLUCOSAMINE [Concomitant]
     Active Substance: GLUCOSAMINE
  3. RAMIPRIL. [Concomitant]
     Active Substance: RAMIPRIL
  4. BISOPROLOL [Concomitant]
     Active Substance: BISOPROLOL
  5. CALCIUM + VITAMIN D3 [Concomitant]
     Active Substance: CALCIUM CARBONATE\CHOLECALCIFEROL
  6. OMEPRAZOLE. [Concomitant]
     Active Substance: OMEPRAZOLE
  7. BARICITINIB [Suspect]
     Active Substance: BARICITINIB
     Indication: RHEUMATOID ARTHRITIS
     Dosage: 4 MG, DAILY
     Route: 048
     Dates: start: 201810
  8. FUROSEMIDE. [Concomitant]
     Active Substance: FUROSEMIDE
  9. ALENDRONIC ACID [Concomitant]
     Active Substance: ALENDRONIC ACID
  10. FUMARATE DISODIUM [Concomitant]
     Active Substance: DISODIUM FUMARATE
  11. HYDROXYCHLOROQUINE [Concomitant]
     Active Substance: HYDROXYCHLOROQUINE

REACTIONS (2)
  - Muscular weakness [Unknown]
  - Weight increased [Unknown]
